FAERS Safety Report 4292189-2 (Version None)
Quarter: 2004Q1

REPORT INFORMATION
  Report Type: 
  Country: None (occurrence: None)
  Receive Date: 20040126
  Receipt Date: 20031103
  Transmission Date: 20041129
  Serious: No
  Sender: FDA-Public Use
  Company Number: USA031151514

PATIENT
  Age: 58 Year
  Sex: Female
  Weight: 124 kg

DRUGS (8)
  1. FORTEO [Suspect]
     Indication: OSTEOPOROSIS
     Dosage: 20 UG/DAY
     Dates: start: 20031030
  2. PAXIL [Concomitant]
  3. LITHIUM CARBONATE [Concomitant]
  4. INSULIN [Concomitant]
  5. ZOFRAN [Concomitant]
  6. FLAGYL [Concomitant]
  7. QUININE [Concomitant]
  8. CALCIUM [Concomitant]

REACTIONS (5)
  - BLOOD PRESSURE DECREASED [None]
  - DIZZINESS [None]
  - FATIGUE [None]
  - MIDDLE INSOMNIA [None]
  - NAUSEA [None]
